FAERS Safety Report 23012360 (Version 2)
Quarter: 2023Q4

REPORT INFORMATION
  Report Type: Spontaneous
  Country: US (occurrence: US)
  Receive Date: 20230930
  Receipt Date: 20231009
  Transmission Date: 20240110
  Serious: Yes (Hospitalization, Other)
  Sender: FDA-Public Use
  Company Number: US-MLMSERVICE-20230918-4551238-1

PATIENT
  Age: 75 Year
  Sex: Male

DRUGS (4)
  1. HYDROXYCHLOROQUINE [Suspect]
     Active Substance: HYDROXYCHLOROQUINE
     Indication: Product used for unknown indication
     Dosage: UNK
     Route: 065
  2. FENBENDAZOLE [Suspect]
     Active Substance: FENBENDAZOLE
     Indication: Prostate cancer metastatic
     Dosage: UNK
     Route: 065
  3. IVERMECTIN [Concomitant]
     Active Substance: IVERMECTIN
     Indication: Prostate cancer metastatic
     Dosage: 80 MILLIGRAM, ONCE A DAY (80 TO 120MG DAILY FOR SIX WEEKS)
     Route: 065
  4. IVERMECTIN [Concomitant]
     Active Substance: IVERMECTIN
     Dosage: 120 MILLIGRAM, ONCE A DAY (80 TO 120MG DAILY FOR SIX WEEKS)
     Route: 065

REACTIONS (8)
  - Unresponsive to stimuli [Recovered/Resolved]
  - Torsade de pointes [Recovered/Resolved]
  - Self-medication [Recovered/Resolved]
  - Electrocardiogram QT prolonged [Recovered/Resolved]
  - Off label use [Recovered/Resolved]
  - Tachyarrhythmia [Recovered/Resolved]
  - Seizure [Recovered/Resolved]
  - Accidental exposure to product [Recovered/Resolved]
